FAERS Safety Report 9125055 (Version 1)
Quarter: 2013Q1

REPORT INFORMATION
  Report Type: Report from Study
  Country: US (occurrence: US)
  Receive Date: 20130117
  Receipt Date: 20130117
  Transmission Date: 20140127
  Serious: Yes (Hospitalization)
  Sender: FDA-Public Use
  Company Number: US-ROCHE-1167850

PATIENT
  Age: 79 Year
  Sex: Male
  Weight: 70.37 kg

DRUGS (4)
  1. ZELBORAF [Suspect]
     Indication: METASTATIC MALIGNANT MELANOMA
     Route: 048
     Dates: start: 201111
  2. ZELBORAF [Suspect]
     Route: 048
     Dates: start: 20111031
  3. SORIATANE [Concomitant]
     Indication: SKIN DISORDER
     Route: 048
  4. COUMADIN [Concomitant]
     Route: 048

REACTIONS (9)
  - Dehydration [Recovered/Resolved]
  - Weight decreased [Recovering/Resolving]
  - Diarrhoea [Unknown]
  - Alopecia [Unknown]
  - Swelling [Unknown]
  - Asthenia [Not Recovered/Not Resolved]
  - Fall [Recovered/Resolved]
  - Gastrointestinal haemorrhage [Not Recovered/Not Resolved]
  - Confusional state [Recovered/Resolved]
